FAERS Safety Report 6024316-0 (Version None)
Quarter: 2008Q4

REPORT INFORMATION
  Report Type: 
  Country: None (occurrence: None)
  Receive Date: 20081222
  Receipt Date: 20081103
  Transmission Date: 20090506
  Serious: No
  Sender: FDA-Public Use
  Company Number: SPV1-2008-02466

PATIENT
  Age: 7 Year
  Sex: Male
  Weight: 26.8 kg

DRUGS (1)
  1. VYVANSE [Suspect]
     Indication: ATTENTION DEFICIT/HYPERACTIVITY DISORDER
     Dosage: 20 MG, ORAL
     Route: 048
     Dates: start: 20080820, end: 20080821

REACTIONS (7)
  - AGITATION [None]
  - DYSARTHRIA [None]
  - EMOTIONAL DISTRESS [None]
  - INSOMNIA [None]
  - LOGORRHOEA [None]
  - MORBID THOUGHTS [None]
  - SELF-INJURIOUS IDEATION [None]
